FAERS Safety Report 4659937-0 (Version None)
Quarter: 2005Q2

REPORT INFORMATION
  Report Type: 
  Country: None (occurrence: None)
  Receive Date: 20050419
  Receipt Date: 20041228
  Transmission Date: 20051028
  Serious: Yes (Disabling, Other)
  Sender: FDA-Public Use
  Company Number: 15963

PATIENT
  Age: 52 Year
  Sex: Female
  Weight: 99 kg

DRUGS (8)
  1. ADRIAMYCIN PFS [Suspect]
     Indication: BREAST CANCER
     Dosage: 60MG/M2 IV Q2WEEKS
     Route: 042
     Dates: start: 20041122
  2. ADRIAMYCIN PFS [Suspect]
     Indication: BREAST CANCER
     Dosage: 60MG/M2 IV Q2WEEKS
     Route: 042
     Dates: start: 20041207
  3. ADRIAMYCIN PFS [Suspect]
     Indication: BREAST CANCER
     Dosage: 60MG/M2 IV Q2WEEKS
     Route: 042
     Dates: start: 20041220
  4. CYCLOPHOSPHAMIDE [Concomitant]
  5. NEUPOGEN [Concomitant]
  6. DECADRON [Concomitant]
  7. METOCLOPRAMIDE [Concomitant]
  8. ANZEMET [Concomitant]

REACTIONS (1)
  - LOCALISED INFECTION [None]
